FAERS Safety Report 5200422-5 (Version None)
Quarter: 2006Q4

REPORT INFORMATION
  Report Type: 
  Country: None (occurrence: None)
  Receive Date: 20061016
  Receipt Date: 20060720
  Transmission Date: 20070319
  Serious: No
  Sender: FDA-Public Use
  Company Number: 2006SP002761

PATIENT
  Age: 67 Year
  Sex: Female

DRUGS (5)
  1. LUNESTA [Suspect]
     Dosage: SEE IMAGE
     Route: 048
     Dates: start: 20060401, end: 20060401
  2. LUNESTA [Suspect]
     Dosage: SEE IMAGE
     Route: 048
     Dates: end: 20060601
  3. LUNESTA [Suspect]
     Dosage: SEE IMAGE
     Route: 048
  4. LUNESTA [Suspect]
     Dosage: SEE IMAGE
     Route: 048
  5. KLONOPIN [Concomitant]

REACTIONS (2)
  - FALL [None]
  - INITIAL INSOMNIA [None]
